FAERS Safety Report 10512167 (Version 3)
Quarter: 2016Q1

REPORT INFORMATION
  Report Type: Spontaneous
  Country: US (occurrence: US)
  Receive Date: 20141010
  Receipt Date: 20160105
  Transmission Date: 20160525
  Serious: No
  Sender: FDA-Public Use
  Company Number: US-PFIZER INC-2014277003

PATIENT
  Age: 60 Year
  Sex: Male

DRUGS (1)
  1. REVATIO [Suspect]
     Active Substance: SILDENAFIL CITRATE
     Dosage: 20 MG, 3X/DAY (20 MG TAKE 1 TABLET TID)

REACTIONS (2)
  - Arthritis [Unknown]
  - Musculoskeletal stiffness [Unknown]
